FAERS Safety Report 7770032-4 (Version None)
Quarter: 2011Q3

REPORT INFORMATION
  Report Type: 
  Country: None (occurrence: None)
  Receive Date: 20110922
  Receipt Date: 20100901
  Transmission Date: 20111222
  Serious: No
  Sender: FDA-Public Use
  Company Number: US-ASTRAZENECA-2009SE28800

PATIENT
  Age: 45 Year
  Sex: Female
  Weight: 128.4 kg

DRUGS (6)
  1. LITHIUM CARBONATE [Concomitant]
     Dates: start: 20060201, end: 20070701
  2. GEODON [Concomitant]
     Dates: start: 20010701, end: 20020501
  3. LITHIUM CARBONATE [Concomitant]
     Dates: start: 20080801
  4. SEROQUEL [Suspect]
     Indication: SLEEP DISORDER
     Dosage: 100-200 MG
     Route: 048
     Dates: start: 20020601, end: 20070401
  5. RISPERDAL [Concomitant]
     Dates: start: 20050101, end: 20070101
  6. SEROQUEL [Suspect]
     Indication: BIPOLAR DISORDER
     Dosage: 100-200 MG
     Route: 048
     Dates: start: 20020601, end: 20070401

REACTIONS (8)
  - OSTEOARTHRITIS [None]
  - BLOOD TRIGLYCERIDES INCREASED [None]
  - IMPAIRED FASTING GLUCOSE [None]
  - OBESITY [None]
  - BLOOD CHOLESTEROL INCREASED [None]
  - HYPERLIPIDAEMIA [None]
  - TYPE 2 DIABETES MELLITUS [None]
  - WEIGHT INCREASED [None]
